FAERS Safety Report 13777340 (Version 2)
Quarter: 2017Q3

REPORT INFORMATION
  Report Type: Report from Study
  Country: DE (occurrence: DE)
  Receive Date: 20170721
  Receipt Date: 20170822
  Transmission Date: 20171127
  Serious: Yes (Other)
  Sender: FDA-Public Use
  Company Number: DE-ROCHE-1964053

PATIENT
  Age: 56 Year
  Sex: Female
  Weight: 81 kg

DRUGS (3)
  1. RIBAVIRIN. [Suspect]
     Active Substance: RIBAVIRIN
     Indication: CHRONIC HEPATITIS C
     Route: 048
     Dates: start: 20170411, end: 20170806
  2. ZEPATIER [Suspect]
     Active Substance: ELBASVIR\GRAZOPREVIR
     Indication: CHRONIC HEPATITIS C
     Route: 048
     Dates: start: 20170411, end: 20170806
  3. FLUANXOL [Concomitant]
     Active Substance: FLUPENTIXOL
     Route: 065
     Dates: start: 2016

REACTIONS (1)
  - Alcoholism [Recovered/Resolved]

NARRATIVE: CASE EVENT DATE: 20170424
